FAERS Safety Report 4850176-7 (Version None)
Quarter: 2005Q4

REPORT INFORMATION
  Report Type: 
  Country: None (occurrence: None)
  Receive Date: 20051207
  Receipt Date: 20051207
  Transmission Date: 20060501
  Serious: No
  Sender: FDA-Public Use
  Company Number: None

PATIENT

DRUGS (2)
  1. ADVICOR [Suspect]
     Dosage: TABLET, EXTENDED RELEASE
  2. ADVAIR DISKUS 250/50 [Suspect]
     Dosage: POWDER, METERED

REACTIONS (2)
  - DRUG PRESCRIBING ERROR [None]
  - MEDICATION ERROR [None]
